FAERS Safety Report 23856305 (Version 2)
Quarter: 2024Q2

REPORT INFORMATION
  Report Type: Spontaneous
  Country: JP (occurrence: JP)
  Receive Date: 20240515
  Receipt Date: 20240607
  Transmission Date: 20240716
  Serious: No
  Sender: FDA-Public Use
  Company Number: JP-UCBJ-CD202403965UCBPHAPROD

PATIENT
  Age: 2 Year
  Sex: Male
  Weight: 13.6 kg

DRUGS (2)
  1. LEVETIRACETAM [Suspect]
     Active Substance: LEVETIRACETAM
     Indication: Epilepsy
     Dosage: UNK
     Route: 048
  2. SODIUM CHLORIDE [Concomitant]
     Active Substance: SODIUM CHLORIDE
     Indication: Hyponatraemia
     Dosage: 4 MILLIEQUIVALENT PER KILOGRAM PER DAY

REACTIONS (1)
  - No adverse event [Unknown]
